FAERS Safety Report 5583101-4 (Version None)
Quarter: 2007Q4

REPORT INFORMATION
  Report Type: 
  Country: None (occurrence: None)
  Receive Date: 20071231
  Receipt Date: 20071217
  Transmission Date: 20080405
  Serious: Yes (Death, Hospitalization)
  Sender: FDA-Public Use
  Company Number: ENTC2007-0160

PATIENT
  Sex: Female

DRUGS (1)
  1. STALEVO 100 [Suspect]
     Dates: start: 20070701, end: 20070705

REACTIONS (5)
  - ANURIA [None]
  - CHROMATURIA [None]
  - DISEASE PROGRESSION [None]
  - MULTIPLE SYSTEM ATROPHY [None]
  - URINARY TRACT DISORDER [None]
